FAERS Safety Report 4324709-3 (Version None)
Quarter: 2004Q1

REPORT INFORMATION
  Report Type: 
  Country: None (occurrence: None)
  Receive Date: 20040325
  Receipt Date: 20040325
  Transmission Date: 20041129
  Serious: Yes (Other)
  Sender: FDA-Public Use
  Company Number: None

PATIENT
  Sex: Male
  Weight: 88.4514 kg

DRUGS (8)
  1. XANAX XR [Suspect]
     Indication: ANXIETY
     Dosage: 1 OR 2 DAILY ORAL
     Route: 048
     Dates: start: 20040315, end: 20040319
  2. NEURONTIN [Concomitant]
  3. BIDEX [Concomitant]
  4. ZYRTEC [Concomitant]
  5. MUCO-FEN [Concomitant]
  6. ANDROGEL [Concomitant]
  7. COUMADIN [Concomitant]
  8. SKELAXIN [Concomitant]

REACTIONS (4)
  - DRUG EFFECT INCREASED [None]
  - MEMORY IMPAIRMENT [None]
  - PHARMACEUTICAL PRODUCT COMPLAINT [None]
  - SOMNOLENCE [None]
